FAERS Safety Report 7676260-0 (Version None)
Quarter: 2011Q3

REPORT INFORMATION
  Report Type: 
  Country: None (occurrence: None)
  Receive Date: 20110811
  Receipt Date: 20110727
  Transmission Date: 20111222
  Serious: Yes (Hospitalization, Disabling)
  Sender: FDA-Public Use
  Company Number: US-UCBSA-037953

PATIENT
  Age: 20 Year
  Sex: Male
  Weight: 75 kg

DRUGS (9)
  1. LAMOTRIGINE [Concomitant]
     Dosage: DOSE INCREASED
     Route: 048
     Dates: start: 20110107
  2. LEVETIRACETAM [Suspect]
     Indication: EPILEPSY
     Route: 048
     Dates: start: 20110107
  3. NAPROXEN [Concomitant]
     Indication: MIGRAINE
  4. CARBAMAZEPINE [Concomitant]
     Indication: EPILEPSY
     Route: 048
     Dates: start: 20081201
  5. ASPIRIN [Concomitant]
  6. OXCARBAZEPINE [Concomitant]
     Indication: EPILEPSY
     Route: 048
     Dates: start: 20090311
  7. LAMOTRIGINE [Concomitant]
     Indication: EPILEPSY
     Route: 048
     Dates: start: 20100106
  8. IBUPROFEN [Concomitant]
  9. TOPIRAMATE [Concomitant]
     Indication: EPILEPSY
     Dates: start: 20110714

REACTIONS (5)
  - MIGRAINE [None]
  - PAIN [None]
  - NAUSEA [None]
  - DIZZINESS [None]
  - VOMITING [None]
